FAERS Safety Report 24397144 (Version 3)
Quarter: 2025Q3

REPORT INFORMATION
  Report Type: Spontaneous
  Country: US (occurrence: US)
  Receive Date: 20241004
  Receipt Date: 20250930
  Transmission Date: 20251021
  Serious: No
  Sender: SANOFI AVENTIS
  Company Number: US-SA-2024SA283921

PATIENT
  Sex: Male
  Weight: 100 kg

DRUGS (6)
  1. DUPIXENT [Suspect]
     Active Substance: DUPILUMAB
     Indication: Nasal polyps
     Dosage: 300 MG, QOW
     Route: 058
  2. DUPIXENT [Suspect]
     Active Substance: DUPILUMAB
     Dosage: 300 MG, QM
     Route: 058
     Dates: start: 2024
  3. DUPIXENT [Suspect]
     Active Substance: DUPILUMAB
     Indication: Nasal polyps
     Dosage: 300 MG, QOW
     Route: 058
  4. ALBUTEROL SULFATE [Concomitant]
     Active Substance: ALBUTEROL SULFATE
  5. SYMBICORT [Concomitant]
     Active Substance: BUDESONIDE\FORMOTEROL FUMARATE DIHYDRATE
  6. BUDESONIDE [Concomitant]
     Active Substance: BUDESONIDE

REACTIONS (5)
  - Eye pain [Not Recovered/Not Resolved]
  - Blister [Not Recovered/Not Resolved]
  - Conjunctivitis [Recovering/Resolving]
  - Injection site pain [Unknown]
  - Off label use [Unknown]

NARRATIVE: CASE EVENT DATE: 20240101
